FAERS Safety Report 7644072-X (Version None)
Quarter: 2011Q3

REPORT INFORMATION
  Report Type: 
  Country: None (occurrence: None)
  Receive Date: 20110729
  Receipt Date: 20110719
  Transmission Date: 20111222
  Serious: Yes (Hospitalization)
  Sender: FDA-Public Use
  Company Number: CA-JNJFOC-20110709153

PATIENT
  Sex: Male
  Weight: 82 kg

DRUGS (7)
  1. REMICADE [Suspect]
     Dosage: 65TH INFUSION
     Route: 042
     Dates: start: 20110719
  2. PREDNISONE [Concomitant]
     Route: 048
  3. AVAPRO [Concomitant]
  4. REMICADE [Suspect]
     Dosage: 64TH INFUSION
     Route: 042
     Dates: start: 20110606
  5. REMICADE [Suspect]
     Route: 042
     Dates: start: 20060131
  6. REMICADE [Suspect]
     Indication: ANKYLOSING SPONDYLITIS
     Route: 042
  7. CORTISONE ACETATE [Concomitant]

REACTIONS (1)
  - CHOLECYSTECTOMY [None]
